FAERS Safety Report 7959472-8 (Version None)
Quarter: 2011Q4

REPORT INFORMATION
  Report Type: 
  Country: None (occurrence: None)
  Receive Date: 20111206
  Receipt Date: 20111201
  Transmission Date: 20120403
  Serious: Yes (Other)
  Sender: FDA-Public Use
  Company Number: FR-PFIZER INC-2011282783

PATIENT
  Age: 61 Year
  Sex: Male

DRUGS (8)
  1. ASPIRIN [Concomitant]
     Dosage: UNK
  2. PERINDOPRIL ERBUMINE [Concomitant]
     Dosage: UNK
  3. SPECIAFOLDINE [Concomitant]
     Dosage: UNK
  4. SECTRAL [Concomitant]
     Dosage: UNK
  5. ATORVASTATIN CALCIUM [Suspect]
     Dosage: 80 MG, 1X/DAY
     Dates: start: 20111101
  6. PLAVIX [Concomitant]
     Dosage: UNK
  7. DIAMICRON [Concomitant]
     Dosage: UNK
  8. METHOTREXATE [Concomitant]
     Dosage: UNK

REACTIONS (5)
  - FATIGUE [None]
  - PARAESTHESIA [None]
  - BLOOD GLUCOSE INCREASED [None]
  - HYPOAESTHESIA [None]
  - CHEST PAIN [None]
